FAERS Safety Report 9363715 (Version 2)
Quarter: 2013Q4

REPORT INFORMATION
  Report Type: Report from Study
  Country: ES (occurrence: ES)
  Receive Date: 20130624
  Receipt Date: 20131107
  Transmission Date: 20140711
  Serious: Yes (Other)
  Sender: FDA-Public Use
  Company Number: ES-009507513-1306ESP006654

PATIENT
  Age: 71 Year
  Sex: Male
  Weight: 78 kg

DRUGS (7)
  1. EZETIMIBE (+) SIMVASTATIN [Suspect]
     Indication: ACUTE CORONARY SYNDROME
     Dosage: UNK
     Route: 048
     Dates: start: 20070619, end: 20130503
  2. SAXAGLIPTIN [Suspect]
     Indication: DIABETES MELLITUS
     Dosage: UNK
     Route: 048
     Dates: start: 20130315, end: 20130410
  3. RAMIPRIL [Concomitant]
     Dosage: UNK
     Route: 048
     Dates: start: 20070720
  4. METFORMIN [Concomitant]
     Dosage: UNK
     Route: 048
     Dates: start: 20070622
  5. ACENOCOUMAROL [Concomitant]
     Dosage: UNK
     Route: 048
     Dates: start: 20121119
  6. CARVEDILOL [Concomitant]
     Dosage: UNK
     Route: 048
     Dates: start: 20071015
  7. GLYBURIDE [Concomitant]
     Dosage: UNK
     Route: 048
     Dates: start: 20070622, end: 20130403

REACTIONS (2)
  - Amylase increased [Recovered/Resolved]
  - Lipase increased [Recovered/Resolved]
